FAERS Safety Report 11521953 (Version 1)
Quarter: 2015Q3

REPORT INFORMATION
  Report Type: Spontaneous
  Country: US (occurrence: US)
  Receive Date: 20150903
  Receipt Date: 20150903
  Transmission Date: 20151125
  Serious: No
  Sender: FDA-Public Use
  Company Number: US-ELI_LILLY_AND_COMPANY-US201301000635

PATIENT
  Sex: Female

DRUGS (2)
  1. CYMBALTA [Suspect]
     Active Substance: DULOXETINE HYDROCHLORIDE
     Indication: FIBROMYALGIA
     Dosage: 60 MG, EACH EVENING
     Dates: end: 20121225
  2. VICTOZA [Concomitant]
     Active Substance: LIRAGLUTIDE

REACTIONS (12)
  - Nausea [Unknown]
  - Influenza [Unknown]
  - Drug withdrawal syndrome [Unknown]
  - Tremor [Unknown]
  - Diabetes mellitus [Unknown]
  - Agitation [Unknown]
  - Tinnitus [Not Recovered/Not Resolved]
  - Mood swings [Unknown]
  - Vomiting [Unknown]
  - Irritability [Unknown]
  - Nervousness [Unknown]
  - Emotional disorder [Unknown]
